FAERS Safety Report 24318649 (Version 2)
Quarter: 2024Q3

REPORT INFORMATION
  Report Type: Report from Study
  Country: AR (occurrence: AR)
  Receive Date: 20240913
  Receipt Date: 20240918
  Transmission Date: 20241016
  Serious: Yes (Hospitalization, Other)
  Sender: NOVARTIS
  Company Number: AR-002147023-NVSC2024AR183113

PATIENT
  Age: 79 Year
  Sex: Male

DRUGS (1)
  1. COSENTYX [Suspect]
     Active Substance: SECUKINUMAB
     Indication: Psoriasis
     Dosage: 150 MG, QMO
     Route: 058

REACTIONS (3)
  - Peritonitis [Recovered/Resolved]
  - Appendicitis [Unknown]
  - Discomfort [Unknown]

NARRATIVE: CASE EVENT DATE: 20240710
